FAERS Safety Report 10522722 (Version 5)
Quarter: 2015Q1

REPORT INFORMATION
  Report Type: Report from Study
  Country: US (occurrence: US)
  Receive Date: 20141016
  Receipt Date: 20150114
  Transmission Date: 20150720
  Serious: Yes (Hospitalization)
  Sender: FDA-Public Use
  Company Number: US-SA-2014SA091395

PATIENT
  Age: 78 Year
  Sex: Male

DRUGS (1)
  1. AUBAGIO [Suspect]
     Active Substance: TERIFLUNOMIDE
     Indication: MULTIPLE SCLEROSIS
     Route: 048
     Dates: start: 20140624

REACTIONS (14)
  - Feeling abnormal [Not Recovered/Not Resolved]
  - Balance disorder [Unknown]
  - Pain in extremity [Unknown]
  - White blood cell count increased [Unknown]
  - Asthenia [Unknown]
  - Condition aggravated [Unknown]
  - Chronic lymphocytic leukaemia [Unknown]
  - Vision blurred [Unknown]
  - Condition aggravated [Not Recovered/Not Resolved]
  - Gait disturbance [Not Recovered/Not Resolved]
  - Speech disorder [Not Recovered/Not Resolved]
  - Infection [Unknown]
  - Hyperhidrosis [Not Recovered/Not Resolved]
  - Memory impairment [Unknown]

NARRATIVE: CASE EVENT DATE: 201406
